FAERS Safety Report 24326507 (Version 1)
Quarter: 2024Q3

REPORT INFORMATION
  Report Type: Spontaneous
  Country: US (occurrence: US)
  Receive Date: 20240917
  Receipt Date: 20240917
  Transmission Date: 20241016
  Serious: No
  Sender: SAREPTA THERAPEUTICS
  Company Number: US-SAREPTA THERAPEUTICS INC.-SRP2023-004022

PATIENT
  Age: 14 Year
  Sex: Male
  Weight: 39 kg

DRUGS (10)
  1. VYONDYS 53 [Suspect]
     Active Substance: GOLODIRSEN
     Indication: Duchenne muscular dystrophy
     Dosage: 1200 MILLIGRAM, WEEKLY
     Route: 042
     Dates: start: 20200601, end: 20231016
  2. VYONDYS 53 [Suspect]
     Active Substance: GOLODIRSEN
     Dosage: 1200 MILLIGRAM, WEEKLY
     Route: 042
     Dates: start: 20231116
  3. ASPIRIN [Concomitant]
     Active Substance: ASPIRIN
     Indication: Product used for unknown indication
     Dosage: UNK, QD
     Route: 048
     Dates: start: 20220309
  4. CYPROHEPTADINE HYDROCHLORIDE [Concomitant]
     Active Substance: CYPROHEPTADINE HYDROCHLORIDE
     Indication: Product used for unknown indication
     Dosage: 7.5 MILLILITER, BID, RX 2MG/5ML
     Route: 048
     Dates: start: 20220309
  5. ENALAPRIL [Concomitant]
     Active Substance: ENALAPRIL
     Indication: Product used for unknown indication
     Dosage: 3.6 MILLILITER, BID, RX 1MG/ML
     Route: 048
     Dates: start: 20220309
  6. PREDNISOLONE SODIUM PHOSPHATE [Concomitant]
     Active Substance: PREDNISOLONE SODIUM PHOSPHATE
     Indication: Product used for unknown indication
     Dosage: 5 MILLILITER, QD, 15MG/5ML, AFTER MEALS OR WITH FOOD OR MILK
     Route: 048
     Dates: start: 20220309
  7. TUMS CHEWIES [Concomitant]
     Indication: Product used for unknown indication
     Dosage: 500 MILLIGRAM, QD
     Route: 048
     Dates: start: 20220309
  8. POLYETHYLENE GLYCOL 3350 [Concomitant]
     Active Substance: POLYETHYLENE GLYCOL 3350
     Indication: Product used for unknown indication
     Dosage: 17 GRAM, QD / SCOOP
     Route: 048
     Dates: start: 20220309
  9. VITAMINS NOS [Concomitant]
     Active Substance: VITAMINS
     Dosage: UNK, QD, 1 GUMMY
     Route: 048
     Dates: start: 20220309
  10. VITAMIN D2 [Concomitant]
     Active Substance: ERGOCALCIFEROL
     Indication: Product used for unknown indication
     Dosage: 1.25 MILLIGRAM, (50,000U), 1 CAP, Q7DAYS
     Route: 048
     Dates: start: 20231020

REACTIONS (2)
  - Product dose omission issue [Unknown]
  - No adverse event [Unknown]

NARRATIVE: CASE EVENT DATE: 20231026
